FAERS Safety Report 5051958-1 (Version None)
Quarter: 2006Q3

REPORT INFORMATION
  Report Type: 
  Country: None (occurrence: None)
  Receive Date: 20060710
  Receipt Date: 20060628
  Transmission Date: 20061208
  Serious: Yes (Hospitalization, Other)
  Sender: FDA-Public Use
  Company Number: 2005130952

PATIENT
  Age: 68 Year
  Sex: Male
  Weight: 120.2032 kg

DRUGS (15)
  1. BEXTRA [Suspect]
     Indication: ARTHRITIS
     Dosage: 10 MG (10 MG, 1 IN 1 D), ORAL
     Route: 048
     Dates: start: 20040301, end: 20041129
  2. DIAZEPAM [Concomitant]
  3. CELEBREX [Concomitant]
  4. NEURONTIN [Concomitant]
  5. OXYCONTIN [Concomitant]
  6. AVANDIA [Concomitant]
  7. DIGOXIN [Concomitant]
  8. LIPITOR [Concomitant]
  9. ALLEGRA-D 12 HOUR [Concomitant]
  10. GLYNASE [Concomitant]
  11. DILTIAZEM HCL [Concomitant]
  12. FOSINOPRIL SODIUM [Concomitant]
  13. ASPIRIN [Concomitant]
  14. VITAMIN B6 [Concomitant]
  15. GLUCOSAMINE [Concomitant]

REACTIONS (5)
  - ANXIETY [None]
  - CEREBROVASCULAR ACCIDENT [None]
  - DEPRESSION [None]
  - MICROANGIOPATHY [None]
  - TRANSIENT ISCHAEMIC ATTACK [None]
